FAERS Safety Report 8860355 (Version 1)
Quarter: 2012Q4

REPORT INFORMATION
  Report Type: Report from Study
  Country: JP (occurrence: JP)
  Receive Date: 20121025
  Receipt Date: 20121025
  Transmission Date: 20130627
  Serious: Yes (Death, Disabling, Other)
  Sender: FDA-Public Use
  Company Number: PHHY2009JP40028

PATIENT
  Age: 75 Year
  Sex: Male
  Weight: 68 kg

DRUGS (6)
  1. ICL670A [Suspect]
     Indication: MYELODYSPLASTIC SYNDROME
     Dosage: 1000 mg daily
     Route: 048
     Dates: start: 20090105, end: 20090708
  2. ICL670A [Suspect]
     Indication: IRON OVERLOAD
  3. GASPORT [Concomitant]
     Indication: TYPE 2 DIABETES MELLITUS
     Dosage: 20 mg, UNK
     Route: 048
     Dates: start: 20090105, end: 20090708
  4. AMARYL [Concomitant]
     Indication: TYPE 2 DIABETES MELLITUS
     Dosage: 1 mg, UNK
     Route: 048
     Dates: start: 20090105, end: 20090708
  5. OLMETEC [Concomitant]
     Indication: TYPE 2 DIABETES MELLITUS
     Dosage: 20 mg, UNK
     Route: 048
     Dates: start: 20090108, end: 20090708
  6. LASIX [Concomitant]
     Indication: TYPE 2 DIABETES MELLITUS
     Dosage: 40 mg, UNK
     Route: 048
     Dates: start: 20090105, end: 20090708

REACTIONS (11)
  - Myelodysplastic syndrome transformation [Fatal]
  - Anaemia [Fatal]
  - Thrombocytopenia [Fatal]
  - White blood cell count increased [Fatal]
  - Acute myeloid leukaemia [Fatal]
  - Aortic aneurysm [Recovered/Resolved with Sequelae]
  - Paralysis [Unknown]
  - Urinary tract infection [Recovering/Resolving]
  - Proteinuria [Not Recovered/Not Resolved]
  - Blood lactate dehydrogenase increased [Not Recovered/Not Resolved]
  - Pneumonia [Recovered/Resolved]
